FAERS Safety Report 5835746-1 (Version None)
Quarter: 2008Q3

REPORT INFORMATION
  Report Type: 
  Country: None (occurrence: None)
  Receive Date: 20080806
  Receipt Date: 20080725
  Transmission Date: 20090109
  Serious: Yes (Hospitalization)
  Sender: FDA-Public Use
  Company Number: US-ROCHE-524762

PATIENT
  Sex: Female
  Weight: 54.4 kg

DRUGS (6)
  1. CAPECITABINE [Suspect]
     Dosage: 1000 MG/M2, UNK
     Route: 065
     Dates: start: 20070724
  2. BEVACIZUMAB [Suspect]
     Dosage: 880 MG, Q3W
     Route: 042
     Dates: start: 20070724
  3. IMODIUM [Concomitant]
     Indication: DRUG USE FOR UNKNOWN INDICATION
     Dosage: UNK, PRN
  4. TENORMIN [Concomitant]
     Indication: DRUG USE FOR UNKNOWN INDICATION
     Dosage: 100 MG, QD
  5. NORVASC [Concomitant]
     Indication: DRUG USE FOR UNKNOWN INDICATION
     Dosage: 5 MG, QD
  6. PRILOSEC [Concomitant]
     Indication: DRUG USE FOR UNKNOWN INDICATION
     Dosage: 40 MG, QD

REACTIONS (1)
  - GASTROENTERITIS [None]
